FAERS Safety Report 5490661-0 (Version None)
Quarter: 2007Q4

REPORT INFORMATION
  Report Type: 
  Country: None (occurrence: None)
  Receive Date: 20071019
  Receipt Date: 20071012
  Transmission Date: 20080405
  Serious: Yes (Other)
  Sender: FDA-Public Use
  Company Number: CA-ASTRAZENECA-2007UW03061

PATIENT
  Age: 65 Year
  Sex: Male
  Weight: 104.3 kg

DRUGS (6)
  1. SEROQUEL [Suspect]
     Indication: SLEEP DISORDER
     Route: 048
     Dates: start: 20070213, end: 20070214
  2. PEPCID [Concomitant]
     Dosage: 40-60 MG
     Route: 048
  3. ASPIRIN [Concomitant]
     Route: 048
  4. TYLENOL (CAPLET) [Concomitant]
     Route: 048
  5. CAFFEINE [Concomitant]
     Route: 048
  6. CHORMILIN [Concomitant]

REACTIONS (12)
  - AGITATION [None]
  - CONSTIPATION [None]
  - DIZZINESS [None]
  - FATIGUE [None]
  - HEADACHE [None]
  - INCREASED APPETITE [None]
  - LETHARGY [None]
  - NAUSEA [None]
  - NIGHTMARE [None]
  - PSYCHOMOTOR HYPERACTIVITY [None]
  - RHINITIS [None]
  - SOMNOLENCE [None]
